FAERS Safety Report 4299861-9 (Version None)
Quarter: 2004Q1

REPORT INFORMATION
  Report Type: 
  Country: None (occurrence: None)
  Receive Date: 20040126
  Receipt Date: 20031120
  Transmission Date: 20041129
  Serious: Yes (Other)
  Sender: FDA-Public Use
  Company Number: USA031153357

PATIENT
  Age: 8 Year
  Sex: Male
  Weight: 20 kg

DRUGS (3)
  1. STRATTERA [Suspect]
     Indication: ATTENTION DEFICIT/HYPERACTIVITY DISORDER
     Dosage: 25 MG/DAY
  2. RITALIN LA (METHYLPHENIDATE HYDROCHLORIDE) [Concomitant]
  3. TENEX [Concomitant]

REACTIONS (1)
  - CONVULSION [None]
